FAERS Safety Report 21257278 (Version 1)
Quarter: 2022Q3

REPORT INFORMATION
  Report Type: Spontaneous
  Country: US (occurrence: US)
  Receive Date: 20220826
  Receipt Date: 20220826
  Transmission Date: 20221027
  Serious: No
  Sender: FDA-Public Use
  Company Number: US-NOVARTISTESTPH-NVSC2022US191206

PATIENT
  Sex: Male

DRUGS (2)
  1. TIMOLOL [Suspect]
     Active Substance: TIMOLOL
     Indication: Eye disorder
     Dosage: 0.5 %, QD
     Route: 047
  2. BETAXOLOL HYDROCHLORIDE [Suspect]
     Active Substance: BETAXOLOL HYDROCHLORIDE
     Indication: Eye disorder
     Dosage: 0.5 ML LDP US
     Route: 047

REACTIONS (2)
  - Ocular hyperaemia [Unknown]
  - Product availability issue [Unknown]
